FAERS Safety Report 15782775 (Version 4)
Quarter: 2020Q1

REPORT INFORMATION
  Report Type: Spontaneous
  Country: US (occurrence: US)
  Receive Date: 20190102
  Receipt Date: 20200114
  Transmission Date: 20200409
  Serious: Yes (Hospitalization)
  Sender: FDA-Public Use
  Company Number: US-PFIZER INC-2018533482

PATIENT
  Age: 79 Year
  Sex: Male
  Weight: 109 kg

DRUGS (4)
  1. LYRICA [Suspect]
     Active Substance: PREGABALIN
     Dosage: 50 MG, UNK
  2. LYRICA [Suspect]
     Active Substance: PREGABALIN
     Indication: DIABETIC NEUROPATHY
     Dosage: 75 MG, THRICE A DAY (IN THE MORNING, AT NOON AND IN THE EVENING)
     Route: 048
  3. LYRICA [Suspect]
     Active Substance: PREGABALIN
     Indication: NEUROPATHY PERIPHERAL
     Dosage: 75 MG, THRICE A DAY
     Route: 048
     Dates: end: 20181221
  4. SIMVASTATIN. [Concomitant]
     Active Substance: SIMVASTATIN
     Indication: BLOOD CHOLESTEROL ABNORMAL
     Dosage: UNK

REACTIONS (7)
  - Blood sodium decreased [Recovered/Resolved]
  - Weight decreased [Unknown]
  - Asthenia [Unknown]
  - Product dispensing error [Unknown]
  - Gait disturbance [Unknown]
  - Incorrect dose administered [Unknown]
  - Taste disorder [Unknown]

NARRATIVE: CASE EVENT DATE: 201812
